FAERS Safety Report 10782406 (Version 1)
Quarter: 2015Q1

REPORT INFORMATION
  Report Type: Spontaneous
  Country: US (occurrence: US)
  Receive Date: 20150210
  Receipt Date: 20150210
  Transmission Date: 20150721
  Serious: Yes (Other)
  Sender: FDA-Public Use
  Company Number: US-TEVA-539813USA

PATIENT
  Age: 37 Year
  Sex: Female
  Weight: 109.41 kg

DRUGS (1)
  1. PARAGARD T 380A [Suspect]
     Active Substance: COPPER
     Indication: CONTRACEPTION
     Route: 015
     Dates: start: 20140810, end: 20150203

REACTIONS (2)
  - Device dislocation [Recovered/Resolved]
  - Dyspareunia [Recovered/Resolved]

NARRATIVE: CASE EVENT DATE: 20150203
